FAERS Safety Report 7986483-9 (Version None)
Quarter: 2011Q4

REPORT INFORMATION
  Report Type: 
  Country: None (occurrence: None)
  Receive Date: 20111216
  Receipt Date: 20110930
  Transmission Date: 20120403
  Serious: No
  Sender: FDA-Public Use
  Company Number: US-BRISTOL-MYERS SQUIBB COMPANY-15519861

PATIENT
  Age: 71 Year
  Sex: Female

DRUGS (3)
  1. LITHIUM [Concomitant]
  2. IMIPRAMINE [Concomitant]
  3. ABILIFY [Suspect]
     Dosage: 2 YEARS AGO

REACTIONS (1)
  - DRUG INEFFECTIVE [None]
